FAERS Safety Report 8599272-1 (Version None)
Quarter: 2012Q3

REPORT INFORMATION
  Report Type: 
  Country: None (occurrence: None)
  Receive Date: 20120816
  Receipt Date: 20120803
  Transmission Date: 20120928
  Serious: No
  Sender: FDA-Public Use
  Company Number: US-ASTRAZENECA-2012SE55325

PATIENT
  Age: 59 Year
  Sex: Female

DRUGS (3)
  1. SEROQUEL XR [Suspect]
     Indication: DEPRESSION
     Route: 048
  2. WELLBUTRIN [Concomitant]
  3. CITILOPRAM [Concomitant]

REACTIONS (6)
  - CRYING [None]
  - DEPRESSION [None]
  - TACHYPHRENIA [None]
  - DRUG DOSE OMISSION [None]
  - HEADACHE [None]
  - INTENTIONAL DRUG MISUSE [None]
